FAERS Safety Report 13354183 (Version 4)
Quarter: 2019Q4

REPORT INFORMATION
  Report Type: Spontaneous
  Country: US (occurrence: US)
  Receive Date: 20170321
  Receipt Date: 20191014
  Transmission Date: 20200122
  Serious: Yes (Hospitalization, Other)
  Sender: FDA-Public Use
  Company Number: US-PFIZER INC-2017120661

PATIENT
  Age: 65 Year
  Sex: Male
  Weight: 74 kg

DRUGS (2)
  1. BOSULIF [Suspect]
     Active Substance: BOSUTINIB MONOHYDRATE
     Indication: LEUKAEMIA
     Dosage: 100 MG,  5 TIMES A DAY
     Dates: start: 20170310
  2. QUINAPRIL. [Concomitant]
     Active Substance: QUINAPRIL
     Indication: BLOOD PRESSURE ABNORMAL
     Dosage: 20 MG, 1X/DAY

REACTIONS (10)
  - Rash [Unknown]
  - Constipation [Unknown]
  - Abdominal pain upper [Unknown]
  - Nausea [Unknown]
  - Headache [Unknown]
  - Decreased appetite [Unknown]
  - White blood cell count abnormal [Unknown]
  - Vomiting [Not Recovered/Not Resolved]
  - Thrombosis [Unknown]
  - Diarrhoea [Unknown]
